FAERS Safety Report 6638164-1 (Version None)
Quarter: 2010Q1

REPORT INFORMATION
  Report Type: 
  Country: None (occurrence: None)
  Receive Date: 20100315
  Receipt Date: 20100315
  Transmission Date: 20100710
  Serious: Yes (Hospitalization)
  Sender: FDA-Public Use
  Company Number: None

PATIENT
  Age: 55 Year
  Sex: Male
  Weight: 139 kg

DRUGS (3)
  1. ASPIRIN [Suspect]
     Indication: CORONARY ARTERY DISEASE
     Dosage: 81 MG EVERY DAY PO
     Route: 048
     Dates: end: 20090727
  2. ASPIRIN [Suspect]
     Indication: PROPHYLAXIS
     Dosage: 81 MG EVERY DAY PO
     Route: 048
     Dates: end: 20090727
  3. DICLOFENAC [Suspect]
     Indication: HEADACHE
     Dosage: 50 MG TID PO
     Route: 048
     Dates: start: 20090430, end: 20090727

REACTIONS (2)
  - GASTRIC HAEMORRHAGE [None]
  - GASTRIC ULCER [None]
